FAERS Safety Report 23170243 (Version 1)
Quarter: 2023Q4

REPORT INFORMATION
  Report Type: Spontaneous
  Country: US (occurrence: US)
  Receive Date: 20231110
  Receipt Date: 20231110
  Transmission Date: 20240110
  Serious: Yes (Hospitalization, Other)
  Sender: FDA-Public Use
  Company Number: US-MICRO LABS LIMITED-ML2023-06360

PATIENT
  Age: 22 Year

DRUGS (15)
  1. BUPROPION [Suspect]
     Active Substance: BUPROPION
     Indication: Craniocerebral injury
     Dates: start: 20211229
  2. BUPROPION [Suspect]
     Active Substance: BUPROPION
     Indication: Headache
     Dosage: BUPROPION INCREASED FROM 300 MG TO 450 MG
     Dates: start: 20220301
  3. BUPROPION [Suspect]
     Active Substance: BUPROPION
     Indication: Dizziness
  4. BUPROPION [Suspect]
     Active Substance: BUPROPION
     Indication: Affective disorder
  5. DULOXETINE [Suspect]
     Active Substance: DULOXETINE
     Indication: Craniocerebral injury
     Dates: start: 20211229
  6. DULOXETINE [Suspect]
     Active Substance: DULOXETINE
     Indication: Headache
     Dosage: RESTARTED UPON DISCHARGE
  7. DULOXETINE [Suspect]
     Active Substance: DULOXETINE
     Indication: Dizziness
  8. GABAPENTIN [Suspect]
     Active Substance: GABAPENTIN
     Indication: Headache
     Dates: start: 20220112
  9. GABAPENTIN [Suspect]
     Active Substance: GABAPENTIN
     Dates: start: 20220210
  10. GABAPENTIN [Suspect]
     Active Substance: GABAPENTIN
     Dosage: GABAPENTIN TAPER WAS BEGUN PER PATIENT REQUEST SECONDARY TO LACK OF EFFICACY
  11. GABAPENTIN [Suspect]
     Active Substance: GABAPENTIN
  12. AMANTADINE [Suspect]
     Active Substance: AMANTADINE
     Indication: Post-traumatic headache
     Dates: start: 20220405
  13. ONDANSETRON [Concomitant]
     Active Substance: ONDANSETRON
     Indication: Product used for unknown indication
  14. BOTULINUM TOXIN NOS [Concomitant]
     Active Substance: BOTULINUM TOXIN NOS
     Indication: Post-traumatic headache
     Dates: start: 20220308
  15. BOTULINUM TOXIN NOS [Concomitant]
     Active Substance: BOTULINUM TOXIN NOS
     Indication: Migraine

REACTIONS (2)
  - Serotonin syndrome [Recovered/Resolved]
  - Drug interaction [Unknown]
